APPROVED DRUG PRODUCT: ALBUTEROL SULFATE
Active Ingredient: ALBUTEROL SULFATE
Strength: EQ 0.083% BASE
Dosage Form/Route: SOLUTION;INHALATION
Application: A075343 | Product #001
Applicant: TEVA PHARMACEUTICALS USA
Approved: Nov 9, 1999 | RLD: No | RS: No | Type: DISCN